FAERS Safety Report 7093912-4 (Version None)
Quarter: 2010Q4

REPORT INFORMATION
  Report Type: 
  Country: None (occurrence: None)
  Receive Date: 20101110
  Receipt Date: 20101105
  Transmission Date: 20110411
  Serious: Yes (Other)
  Sender: FDA-Public Use
  Company Number: AT-PFIZER INC-2010142128

PATIENT
  Age: 28 Year
  Weight: 62 kg

DRUGS (1)
  1. SAYANA [Suspect]
     Dosage: 104 MG, EVERY 3 MONTHS
     Dates: start: 20101029

REACTIONS (3)
  - DYSPNOEA [None]
  - RASH [None]
  - SWELLING FACE [None]
